FAERS Safety Report 8217709-4 (Version None)
Quarter: 2012Q1

REPORT INFORMATION
  Report Type: 
  Country: None (occurrence: None)
  Receive Date: 20120319
  Receipt Date: 20120309
  Transmission Date: 20120608
  Serious: Yes (Other)
  Sender: FDA-Public Use
  Company Number: US-US-EMD SERONO, INC.-7118515

PATIENT
  Sex: Female

DRUGS (4)
  1. REBIF [Suspect]
     Route: 058
     Dates: start: 20120308
  2. TEGRETOL [Suspect]
     Indication: CONVULSION
  3. REBIF [Suspect]
     Indication: MULTIPLE SCLEROSIS
     Route: 058
     Dates: start: 20111117, end: 20111201
  4. REBIF [Suspect]
     Route: 058
     Dates: start: 20111201, end: 20120101

REACTIONS (1)
  - STEVENS-JOHNSON SYNDROME [None]
